FAERS Safety Report 23150543 (Version 1)
Quarter: 2023Q4

REPORT INFORMATION
  Report Type: Spontaneous
  Country: US (occurrence: US)
  Receive Date: 20231106
  Receipt Date: 20231106
  Transmission Date: 20240110
  Serious: No
  Sender: FDA-Public Use
  Company Number: US-BAUSCH-BL-2023-016240

PATIENT
  Age: 65 Year
  Sex: Female
  Weight: 54.934 kg

DRUGS (1)
  1. PLENVU [Suspect]
     Active Substance: ASCORBIC ACID\POLYETHYLENE GLYCOL 3350\POTASSIUM CHLORIDE\SODIUM ASCORBATE\SODIUM CHLORIDE\SODIUM SU
     Indication: Colonoscopy
     Route: 048

REACTIONS (4)
  - Vomiting [Unknown]
  - Malaise [Unknown]
  - Product deposit [Unknown]
  - Product taste abnormal [Unknown]
